FAERS Safety Report 14355955 (Version 1)
Quarter: 2018Q1

REPORT INFORMATION
  Report Type: Spontaneous
  Country: US (occurrence: US)
  Receive Date: 20180105
  Receipt Date: 20180105
  Transmission Date: 20180509
  Serious: No
  Sender: FDA-Public Use
  Company Number: US-PFIZER INC-2015404407

PATIENT
  Age: 60 Year
  Sex: Male

DRUGS (4)
  1. RAPAMUNE [Suspect]
     Active Substance: SIROLIMUS
     Indication: MYELODYSPLASTIC SYNDROME
     Dosage: 1 MG, 1X/DAY (2 TABLETS)
     Route: 048
  2. VFEND [Suspect]
     Active Substance: VORICONAZOLE
     Indication: MYELODYSPLASTIC SYNDROME
     Dosage: 200 MG, 2X/DAY (ON AN EMPTY STOMACH)
     Route: 048
  3. RAPAMUNE [Suspect]
     Active Substance: SIROLIMUS
     Indication: GRAFT VERSUS HOST DISEASE
     Dosage: 1.5 MG, DAILY (THREE TABLETS)
     Route: 048
  4. VFEND [Suspect]
     Active Substance: VORICONAZOLE
     Indication: CHRONIC GRAFT VERSUS HOST DISEASE

REACTIONS (1)
  - Influenza [Unknown]
